FAERS Safety Report 9016175 (Version 2)
Quarter: 2013Q2

REPORT INFORMATION
  Report Type: Spontaneous
  Country: DE (occurrence: DE)
  Receive Date: 20130116
  Receipt Date: 20130404
  Transmission Date: 20140414
  Serious: Yes (Hospitalization)
  Sender: FDA-Public Use
  Company Number: DE-US-EMD SERONO, INC.-7187506

PATIENT
  Age: 47 Year
  Sex: Female
  Weight: 65 kg

DRUGS (1)
  1. REBIF [Suspect]
     Indication: MULTIPLE SCLEROSIS
     Route: 058
     Dates: start: 2000, end: 20120829

REACTIONS (6)
  - Bone marrow disorder [Unknown]
  - Megakaryocytes abnormal [Recovered/Resolved]
  - Granulocytes abnormal [Recovered/Resolved]
  - Leukopenia [Recovered/Resolved]
  - Gamma-glutamyltransferase increased [Unknown]
  - Urinary retention [Unknown]
